FAERS Safety Report 20897608 (Version 2)
Quarter: 2022Q3

REPORT INFORMATION
  Report Type: Spontaneous
  Country: US (occurrence: US)
  Receive Date: 20220531
  Receipt Date: 20220701
  Transmission Date: 20221027
  Serious: No
  Sender: FDA-Public Use
  Company Number: US-PFIZER INC-202200759837

PATIENT
  Age: 68 Year
  Sex: Female
  Weight: 68.027 kg

DRUGS (5)
  1. PAXLOVID [Suspect]
     Active Substance: NIRMATRELVIR\RITONAVIR
     Indication: COVID-19 treatment
     Dosage: UNK
     Route: 048
     Dates: start: 20220507, end: 20220511
  2. PLAQUENIL [Concomitant]
     Active Substance: HYDROXYCHLOROQUINE SULFATE
     Indication: Rheumatoid arthritis
     Dosage: UNK
     Dates: start: 20100101
  3. PLAQUENIL [Concomitant]
     Active Substance: HYDROXYCHLOROQUINE SULFATE
     Dosage: 300 MG, DAILY
     Dates: start: 2007
  4. SIMPONI ARIA [Concomitant]
     Active Substance: GOLIMUMAB
     Indication: Rheumatoid arthritis
     Dosage: UNK (INFUSION EVERY 8 WEEKS)
     Dates: start: 20190722, end: 20220502
  5. VAGIFEM [Concomitant]
     Active Substance: ESTRADIOL
     Indication: Atrophic vulvovaginitis
     Dosage: UNK (3X/WEEK)
     Dates: start: 2017

REACTIONS (3)
  - COVID-19 [Recovering/Resolving]
  - Disease recurrence [Recovering/Resolving]
  - Upper respiratory tract infection [Recovered/Resolved]

NARRATIVE: CASE EVENT DATE: 20220518
